FAERS Safety Report 6335836-3 (Version None)
Quarter: 2009Q3

REPORT INFORMATION
  Report Type: 
  Country: None (occurrence: None)
  Receive Date: 20090828
  Receipt Date: 20090814
  Transmission Date: 20100115
  Serious: Yes (Other)
  Sender: FDA-Public Use
  Company Number: 8050813

PATIENT
  Age: 30 Year
  Sex: Female

DRUGS (6)
  1. KEPPRA [Suspect]
     Indication: PARTIAL SEIZURES
     Dosage: 2750 MG PO
     Route: 048
     Dates: start: 20080421, end: 20080901
  2. KEPPRA [Suspect]
     Indication: PARTIAL SEIZURES
     Dosage: 1250 MG 2/D PO
     Route: 048
     Dates: start: 20080901, end: 20081004
  3. KEPPRA [Suspect]
     Indication: PARTIAL SEIZURES
     Dosage: 2250 MG PO
     Route: 048
     Dates: start: 20081005, end: 20081021
  4. KEPPRA [Suspect]
     Indication: PARTIAL SEIZURES
     Dosage: 1000 MG 2/D PO
     Route: 048
     Dates: start: 20081022, end: 20090420
  5. KEPPRA [Suspect]
     Indication: PARTIAL SEIZURES
     Dosage: 2250 MG PO
     Route: 048
     Dates: start: 20090421
  6. ACID FOLIC [Concomitant]

REACTIONS (4)
  - CAESAREAN SECTION [None]
  - CONVULSION [None]
  - DRUG EXPOSURE DURING PREGNANCY [None]
  - PREGNANCY [None]
